FAERS Safety Report 5468328-4 (Version None)
Quarter: 2007Q3

REPORT INFORMATION
  Report Type: 
  Country: None (occurrence: None)
  Receive Date: 20070926
  Receipt Date: 20070919
  Transmission Date: 20080115
  Serious: Yes (Hospitalization)
  Sender: FDA-Public Use
  Company Number: A0683027A

PATIENT
  Age: 79 Year
  Sex: Female

DRUGS (10)
  1. COREG CR [Suspect]
     Indication: HYPERTENSION
     Dosage: 40MG PER DAY
     Route: 048
     Dates: start: 20070524, end: 20070601
  2. DIOVAN [Concomitant]
  3. FUROSEMIDE [Concomitant]
  4. SYNTHROID [Concomitant]
  5. PREMARIN [Concomitant]
  6. PROVERA [Concomitant]
  7. ASPIRIN [Concomitant]
  8. CALCIUM [Concomitant]
  9. COENZYME Q10 [Concomitant]
  10. GLUCOSAMINE CHONDROITIN [Concomitant]

REACTIONS (5)
  - AMNESIA [None]
  - ARRHYTHMIA [None]
  - LOSS OF CONSCIOUSNESS [None]
  - OXYGEN SATURATION DECREASED [None]
  - TRANSIENT ISCHAEMIC ATTACK [None]
